FAERS Safety Report 4945482-1 (Version None)
Quarter: 2006Q1

REPORT INFORMATION
  Report Type: 
  Country: None (occurrence: None)
  Receive Date: 20060316
  Receipt Date: 20060131
  Transmission Date: 20060701
  Serious: Yes (Hospitalization)
  Sender: FDA-Public Use
  Company Number: DE-GLAXOSMITHKLINE-D0048597A

PATIENT
  Age: 88 Year
  Sex: Male

DRUGS (1)
  1. PAROXETINE HCL [Suspect]
     Dosage: 20MG UNKNOWN
     Route: 048
     Dates: start: 20050401

REACTIONS (1)
  - SKIN DISORDER [None]
